FAERS Safety Report 9871028 (Version 2)
Quarter: 2014Q1

REPORT INFORMATION
  Report Type: Spontaneous
  Country: US (occurrence: US)
  Receive Date: 20140205
  Receipt Date: 20140307
  Transmission Date: 20141002
  Serious: No
  Sender: FDA-Public Use
  Company Number: US-B.I. PHARMACEUTICALS,INC./RIDGEFIELD-2014-BI-04724BP

PATIENT
  Age: 60 Year
  Sex: Male
  Weight: 82.55 kg

DRUGS (3)
  1. JENTADUETO [Suspect]
     Indication: TYPE 2 DIABETES MELLITUS
     Dosage: DOSE PER APPLICATION: 2.5 MG / 500 MG; DAILY DOSE: 5 MG / 1000 MG
     Route: 048
     Dates: start: 201312, end: 201312
  2. LISINOPRIL [Concomitant]
     Indication: HYPERTENSION
     Route: 065
  3. AMLODIPINE [Concomitant]
     Indication: HYPERTENSION
     Route: 065

REACTIONS (1)
  - Hypoglycaemia [Recovered/Resolved]
